FAERS Safety Report 6652598-0 (Version None)
Quarter: 2010Q1

REPORT INFORMATION
  Report Type: 
  Country: None (occurrence: None)
  Receive Date: 20100326
  Receipt Date: 20100316
  Transmission Date: 20100710
  Serious: Yes (Death, Hospitalization, Other)
  Sender: FDA-Public Use
  Company Number: US-BIOGENIDEC-2009BI041411

PATIENT
  Age: 59 Year
  Sex: Female

DRUGS (2)
  1. AVONEX [Suspect]
     Indication: MULTIPLE SCLEROSIS
     Route: 030
     Dates: start: 20040301
  2. AVONEX [Suspect]
     Route: 030
     Dates: start: 19960520

REACTIONS (4)
  - ANOXIC ENCEPHALOPATHY [None]
  - HEPATIC FAILURE [None]
  - PNEUMONIA [None]
  - SEPTIC SHOCK [None]
